FAERS Safety Report 24881391 (Version 4)
Quarter: 2025Q2

REPORT INFORMATION
  Report Type: Spontaneous
  Country: CN (occurrence: CN)
  Receive Date: 20250124
  Receipt Date: 20250528
  Transmission Date: 20250717
  Serious: Yes (Other)
  Sender: NOVO NORDISK
  Company Number: CN-NOVOPROD-1354635

PATIENT
  Age: 46 Year
  Sex: Female
  Weight: 90.5 kg

DRUGS (4)
  1. OZEMPIC [Suspect]
     Active Substance: SEMAGLUTIDE
     Indication: Weight control
     Dates: start: 202405
  2. OZEMPIC [Suspect]
     Active Substance: SEMAGLUTIDE
     Dates: end: 20250107
  3. OZEMPIC [Suspect]
     Active Substance: SEMAGLUTIDE
  4. OZEMPIC [Suspect]
     Active Substance: SEMAGLUTIDE

REACTIONS (5)
  - Amnesia [Not Recovered/Not Resolved]
  - Slow response to stimuli [Not Recovered/Not Resolved]
  - Hyperhidrosis [Unknown]
  - Weight increased [Unknown]
  - Off label use [Not Recovered/Not Resolved]

NARRATIVE: CASE EVENT DATE: 20240501
